FAERS Safety Report 16958358 (Version 1)
Quarter: 2019Q4

REPORT INFORMATION
  Report Type: Spontaneous
  Country: US (occurrence: US)
  Receive Date: 20191024
  Receipt Date: 20191024
  Transmission Date: 20200122
  Serious: No
  Sender: FDA-Public Use
  Company Number: US-TEVA-2019-US-1126453

PATIENT
  Sex: Female

DRUGS (2)
  1. NORETHINDRONE ACETATE TEVA [Suspect]
     Active Substance: NORETHINDRONE ACETATE
     Indication: THROMBOSIS
  2. NORETHINDRONE ACETATE TEVA [Suspect]
     Active Substance: NORETHINDRONE ACETATE
     Indication: HAEMORRHAGE
     Dates: start: 201909

REACTIONS (7)
  - Dyspnoea [Unknown]
  - Nausea [Unknown]
  - Feeling abnormal [Unknown]
  - Dizziness [Unknown]
  - Malaise [Unknown]
  - Fatigue [Unknown]
  - Product substitution issue [Unknown]

NARRATIVE: CASE EVENT DATE: 2019
